FAERS Safety Report 9807899 (Version 2)
Quarter: 2014Q1

REPORT INFORMATION
  Report Type: Spontaneous
  Country: IT (occurrence: IT)
  Receive Date: 20140110
  Receipt Date: 20140128
  Transmission Date: 20141002
  Serious: Yes (Other)
  Sender: FDA-Public Use
  Company Number: IT-VERTEX PHARMACEUTICALS INC-2014-000104

PATIENT
  Age: 66 Year
  Sex: Female

DRUGS (4)
  1. INCIVO [Suspect]
     Indication: HEPATITIS C
     Dosage: 2250 MG, QD
     Route: 048
  2. PEGASYS [Suspect]
     Indication: HEPATITIS C
     Dosage: 180 ?G, QW
     Route: 058
  3. COPEGUS [Suspect]
     Indication: HEPATITIS C
     Dosage: 2 DF, QD
     Route: 048
  4. COPEGUS [Suspect]
     Dosage: 400 MG, UNK
     Route: 048

REACTIONS (2)
  - Anaemia [Recovered/Resolved]
  - Syncope [Recovered/Resolved]
